FAERS Safety Report 24392611 (Version 1)
Quarter: 2024Q4

REPORT INFORMATION
  Report Type: Spontaneous
  Country: AE (occurrence: None)
  Receive Date: 20241002
  Receipt Date: 20241002
  Transmission Date: 20250114
  Serious: Yes (Life-Threatening, Hospitalization, Disabling, Other)
  Sender: Public
  Company Number: None

PATIENT
  Age: 35 Year
  Sex: Male

DRUGS (4)
  1. INVEGA TRINZA [Suspect]
     Active Substance: PALIPERIDONE PALMITATE
  2. INVEGA [Concomitant]
     Active Substance: PALIPERIDONE
  3. INVEGA TRINZA [Concomitant]
     Active Substance: PALIPERIDONE PALMITATE
  4. PSYLLIUM HUSK [Concomitant]
     Active Substance: PSYLLIUM HUSK

REACTIONS (6)
  - Blood prolactin increased [None]
  - Blood testosterone decreased [None]
  - Ejaculation delayed [None]
  - Constipation [None]
  - Faecaloma [None]
  - Dyspepsia [None]

NARRATIVE: CASE EVENT DATE: 20230901
